FAERS Safety Report 9820618 (Version 1)
Quarter: 2013Q4

REPORT INFORMATION
  Report Type: Spontaneous
  Country: US (occurrence: None)
  Receive Date: 20131025
  Receipt Date: 20131025
  Transmission Date: 20140711
  Serious: Yes (Other)
  Sender: FDA-Public Use
  Company Number: AP356-00042-SPO-US

PATIENT
  Age: 70 Year
  Sex: Male

DRUGS (5)
  1. BELVIQ (LORCASERIN HYDROCHLORIDE) [Suspect]
     Indication: WEIGHT CONTROL
     Route: 048
     Dates: start: 201307
  2. BYETTA [Concomitant]
  3. LANTUS (INSULIN GLARGINE) [Concomitant]
  4. HUMALOG (INSULIN LISPRO) [Concomitant]
  5. AMBIEN (ZOLPIDEM TARTRATE) [Concomitant]

REACTIONS (1)
  - Hypoglycaemia [None]
